FAERS Safety Report 20930221 (Version 1)
Quarter: 2022Q2

REPORT INFORMATION
  Report Type: Spontaneous
  Country: GB (occurrence: GB)
  Receive Date: 20220608
  Receipt Date: 20220608
  Transmission Date: 20220721
  Serious: Yes (Hospitalization)
  Sender: FDA-Public Use
  Company Number: GB-TEVA-2022-GB-2043988

PATIENT
  Age: 81 Year
  Sex: Female

DRUGS (13)
  1. PREDNISOLONE [Suspect]
     Active Substance: PREDNISOLONE
     Indication: Giant cell arteritis
     Route: 048
  2. DIHYDROCODEINE [Suspect]
     Active Substance: DIHYDROCODEINE
     Indication: Tongue necrosis
     Route: 065
  3. RAMIPRIL [Suspect]
     Active Substance: RAMIPRIL
     Indication: Hypertension
     Route: 065
  4. METHYLPREDNISOLONE [Suspect]
     Active Substance: METHYLPREDNISOLONE
     Indication: Giant cell arteritis
     Route: 042
  5. CHLORHEXIDINE [Suspect]
     Active Substance: CHLORHEXIDINE
     Indication: Tongue necrosis
     Dosage: MOUTHWASH
     Route: 065
  6. OXETACAINE [Suspect]
     Active Substance: OXETHAZAINE
     Indication: Tongue necrosis
     Route: 065
  7. CHOLINE SALICYLATE [Suspect]
     Active Substance: CHOLINE SALICYLATE
     Indication: Tongue necrosis
     Route: 065
  8. BENZYDAMINE [Suspect]
     Active Substance: BENZYDAMINE
     Indication: Glossodynia
     Route: 065
  9. BENZYDAMINE [Suspect]
     Active Substance: BENZYDAMINE
     Indication: Tongue necrosis
     Route: 065
  10. PENICILLIN V [Concomitant]
     Active Substance: PENICILLIN V
     Indication: Glossodynia
     Route: 048
  11. NYSTATIN [Concomitant]
     Active Substance: NYSTATIN
     Indication: Oral candidiasis
     Route: 048
  12. OMEPRAZOLE [Concomitant]
     Active Substance: OMEPRAZOLE
     Indication: Product used for unknown indication
     Route: 065
  13. DENOSUMAB [Concomitant]
     Active Substance: DENOSUMAB
     Indication: Product used for unknown indication
     Route: 065

REACTIONS (3)
  - Cerebellar stroke [Recovering/Resolving]
  - Ischaemic stroke [Recovering/Resolving]
  - Drug ineffective [Unknown]
